FAERS Safety Report 16792094 (Version 2)
Quarter: 2019Q4

REPORT INFORMATION
  Report Type: Report from Study
  Country: BE (occurrence: BE)
  Receive Date: 20190910
  Receipt Date: 20191003
  Transmission Date: 20200122
  Serious: Yes (Hospitalization)
  Sender: FDA-Public Use
  Company Number: BE-EXELIXIS-CABO-19023516

PATIENT

DRUGS (3)
  1. COMETRIQ [Suspect]
     Active Substance: CABOZANTINIB S-MALATE
     Dosage: 100 MG, QD
     Dates: start: 201811
  2. COMETRIQ [Suspect]
     Active Substance: CABOZANTINIB S-MALATE
     Dosage: UNK
     Dates: start: 201903, end: 201908
  3. COMETRIQ [Suspect]
     Active Substance: CABOZANTINIB S-MALATE
     Indication: THYROID CANCER METASTATIC
     Dosage: 140 MG, QD

REACTIONS (8)
  - Malnutrition [Unknown]
  - Gastrointestinal disorder [Unknown]
  - Malignant neoplasm progression [Unknown]
  - Drug intolerance [Unknown]
  - General physical health deterioration [Unknown]
  - Cachexia [Unknown]
  - Behaviour disorder [Unknown]
  - Dehydration [Unknown]
